FAERS Safety Report 7648138-X (Version None)
Quarter: 2011Q3

REPORT INFORMATION
  Report Type: 
  Country: None (occurrence: None)
  Receive Date: 20110801
  Receipt Date: 20110728
  Transmission Date: 20111222
  Serious: Yes (Other)
  Sender: FDA-Public Use
  Company Number: US-PFIZER INC-2011138937

PATIENT
  Sex: Male
  Weight: 72.562 kg

DRUGS (4)
  1. LIPITOR [Suspect]
     Indication: BLOOD CHOLESTEROL INCREASED
     Dosage: 10 MG, DAILY
     Route: 048
     Dates: start: 20061117
  2. VIAGRA [Suspect]
     Indication: ERECTILE DYSFUNCTION
     Dosage: 50 MG, AS NEEDED
     Route: 048
     Dates: start: 20090508
  3. VIAGRA [Suspect]
     Dosage: 100 MG, AS NEEDED
     Route: 048
  4. TYLENOL-500 [Concomitant]
     Dosage: UNK

REACTIONS (2)
  - MUSCULOSKELETAL STIFFNESS [None]
  - ARTHRITIS [None]
